FAERS Safety Report 7457534-5 (Version None)
Quarter: 2011Q2

REPORT INFORMATION
  Report Type: 
  Country: None (occurrence: None)
  Receive Date: 20110504
  Receipt Date: 20110428
  Transmission Date: 20111010
  Serious: Yes (Hospitalization)
  Sender: FDA-Public Use
  Company Number: ES-SANOFI-AVENTIS-2011SA026357

PATIENT
  Age: 80 Year
  Sex: Female

DRUGS (5)
  1. SEGURIL [Suspect]
     Indication: CARDIAC FAILURE CONGESTIVE
     Route: 048
     Dates: start: 20100101, end: 20110301
  2. ALDACTONE [Suspect]
     Indication: CARDIAC FAILURE CONGESTIVE
     Route: 048
     Dates: start: 20100101, end: 20110301
  3. OMEPRAZOLE [Concomitant]
     Indication: PROPHYLAXIS
     Route: 048
     Dates: start: 20100101
  4. PRIMPERAN TAB [Concomitant]
     Indication: VOMITING
     Route: 048
     Dates: start: 20100101
  5. SERTRALINE [Concomitant]
     Route: 048
     Dates: start: 20100101

REACTIONS (1)
  - RENAL FAILURE ACUTE [None]
